FAERS Safety Report 21598745 (Version 1)
Quarter: 2022Q4

REPORT INFORMATION
  Report Type: Spontaneous
  Country: US (occurrence: None)
  Receive Date: 20221115
  Receipt Date: 20221115
  Transmission Date: 20230112
  Serious: Yes (Death)
  Sender: FDA-Public Use
  Company Number: None

PATIENT
  Age: 75 Year
  Sex: Male
  Weight: 60.3 kg

DRUGS (11)
  1. EVUSHELD [Suspect]
     Active Substance: CILGAVIMAB\TIXAGEVIMAB
     Indication: Immunodeficiency
     Dosage: OTHER FREQUENCY : ONCE;?
     Route: 030
     Dates: start: 20221103, end: 20221103
  2. ROMIPLOSTIM [Concomitant]
     Active Substance: ROMIPLOSTIM
     Dates: start: 20210621
  3. ATORVASTATIN [Concomitant]
     Active Substance: ATORVASTATIN
  4. BUMETANIDE [Concomitant]
     Active Substance: BUMETANIDE
  5. DIGOXIN [Concomitant]
     Active Substance: DIGOXIN
  6. EMPAGLIFLOZIN [Concomitant]
     Active Substance: EMPAGLIFLOZIN
  7. EPLERENONE [Concomitant]
     Active Substance: EPLERENONE
  8. LEVOTHYROXINE [Concomitant]
     Active Substance: LEVOTHYROXINE
  9. TRAZODONE [Concomitant]
     Active Substance: TRAZODONE HYDROCHLORIDE
  10. METOPROLOL [Concomitant]
     Active Substance: METOPROLOL
  11. FERROUS SULFATE [Concomitant]
     Active Substance: FERROUS SULFATE

REACTIONS (1)
  - Cardiac arrest [None]

NARRATIVE: CASE EVENT DATE: 20221109
